FAERS Safety Report 8470418 (Version 4)
Quarter: 2013Q4

REPORT INFORMATION
  Report Type: Spontaneous
  Country: US (occurrence: US)
  Receive Date: 20120321
  Receipt Date: 20131015
  Transmission Date: 20140711
  Serious: Yes (Other)
  Sender: FDA-Public Use
  Company Number: US-ALLERGAN-1202400US

PATIENT
  Age: 55 Year
  Sex: Female

DRUGS (11)
  1. BOTOX [Suspect]
     Indication: MIGRAINE
     Dosage: 100 UNITS, SINGLE
     Route: 030
     Dates: start: 20111122, end: 20111122
  2. SYNTHROID [Concomitant]
     Indication: HYPOTHYROIDISM
     Dosage: UNK
     Route: 048
  3. NATURE-THYROID [Concomitant]
     Indication: HYPOTHYROIDISM
     Dosage: 0.25 MG, QD
     Route: 048
  4. ESTRADIAL [Concomitant]
     Dosage: UNK
     Route: 048
  5. PROVERA [Concomitant]
     Dosage: UNK
  6. SAVELLA [Concomitant]
     Dosage: UNK
  7. ALPRAZOLAM [Concomitant]
     Indication: ANXIETY
     Dosage: 0.5 MG, PRN
  8. RESTASIS [Concomitant]
     Dosage: UNK
  9. PULMICORT [Concomitant]
     Indication: ASTHMA
     Dosage: UNK
  10. ALBUTEROL [Concomitant]
     Indication: ASTHMA
     Dosage: UNK
  11. EPI-PEN [Concomitant]
     Indication: HYPERSENSITIVITY
     Dosage: UNK

REACTIONS (10)
  - Confusional state [Not Recovered/Not Resolved]
  - Convulsion [Recovered/Resolved]
  - Nervous system disorder [Not Recovered/Not Resolved]
  - Drug hypersensitivity [Not Recovered/Not Resolved]
  - Photophobia [Not Recovered/Not Resolved]
  - Loss of consciousness [Unknown]
  - Facial spasm [Unknown]
  - Muscle spasms [Not Recovered/Not Resolved]
  - Asthenia [Not Recovered/Not Resolved]
  - Vision blurred [Not Recovered/Not Resolved]
